FAERS Safety Report 9856801 (Version 3)
Quarter: 2014Q2

REPORT INFORMATION
  Report Type: Spontaneous
  Country: GB (occurrence: GB)
  Receive Date: 20140130
  Receipt Date: 20140627
  Transmission Date: 20141212
  Serious: Yes (Hospitalization)
  Sender: FDA-Public Use
  Company Number: GB-B.I. PHARMACEUTICALS,INC./RIDGEFIELD-2014-BI-03430UK

PATIENT
  Age: 80 Year
  Sex: Male

DRUGS (20)
  1. PRADAXA [Suspect]
     Indication: ATRIAL FIBRILLATION
     Dosage: 220 MG
     Route: 048
  2. IPRATROPIUM [Concomitant]
     Dosage: 6 PUF
     Route: 065
  3. MIRTAZAPINE [Concomitant]
     Dosage: 30 MG
     Route: 065
  4. GABAPENTIN [Concomitant]
     Dosage: 900 MG
     Route: 065
  5. SERETIDE [Concomitant]
     Dosage: 500 MCG
     Route: 065
  6. PARACETAMOL [Concomitant]
     Route: 065
  7. AMITRIPTYLINE [Concomitant]
     Dosage: 20 MG
     Route: 065
  8. FERROUS SULPHATE [Concomitant]
     Dosage: 600 MG
     Route: 065
  9. OMEPRAZOLE [Concomitant]
     Dosage: 40 MG
     Route: 065
  10. PRAVASTATIN [Concomitant]
     Dosage: 40 MG
     Route: 065
  11. GLICLAZIDE [Concomitant]
     Dosage: 320 MG
     Route: 065
  12. DIGOXIN [Concomitant]
     Dosage: 62.5 MCG
     Route: 065
  13. RAMIPRIL [Concomitant]
     Dosage: 7.5 MG
     Route: 065
  14. TAMSULOSIN [Concomitant]
     Dosage: 400 MCG
     Route: 065
  15. INSULIN [Concomitant]
     Route: 065
  16. METFORMIN [Concomitant]
     Dosage: 1 G
     Route: 065
  17. FUROSEMIDE [Concomitant]
     Dosage: 120 MG
     Route: 065
  18. SPIRONOLACTONE [Concomitant]
     Dosage: 50 MG
     Route: 065
  19. HYDROXYZINE [Concomitant]
     Dosage: 25 MG
     Route: 065
  20. LACTULOSE [Concomitant]
     Dosage: 20 ML
     Route: 065

REACTIONS (4)
  - Renal failure acute [Recovered/Resolved]
  - Gallbladder empyema [Recovered/Resolved]
  - Septic shock [Recovered/Resolved]
  - Drug level increased [Recovered/Resolved]
